FAERS Safety Report 8607685-4 (Version None)
Quarter: 2012Q3

REPORT INFORMATION
  Report Type: 
  Country: None (occurrence: None)
  Receive Date: 20120821
  Receipt Date: 20120815
  Transmission Date: 20120928
  Serious: Yes (Other)
  Sender: FDA-Public Use
  Company Number: US-PFIZER INC-2012200507

PATIENT
  Age: 64 Year
  Sex: Male
  Weight: 86.168 kg

DRUGS (3)
  1. DEPO-TESTOSTERONE [Suspect]
     Dosage: 200 MG/CC, ONCE A MONTH
     Dates: start: 20120513
  2. DEPO-TESTOSTERONE [Suspect]
     Indication: HORMONE REPLACEMENT THERAPY
     Dosage: 100 MG/CC, ONCE A MONTH
     Dates: start: 20090101, end: 20120513
  3. PAXIL [Concomitant]
     Indication: DEPRESSION
     Dosage: 20 MG, ONCE A DAY
     Route: 048

REACTIONS (6)
  - DEPRESSION [None]
  - PERSONALITY CHANGE [None]
  - DRUG INEFFECTIVE [None]
  - ACTIVITIES OF DAILY LIVING IMPAIRED [None]
  - PAIN [None]
  - BLOOD CHOLESTEROL INCREASED [None]
